FAERS Safety Report 12122157 (Version 1)
Quarter: 2016Q1

REPORT INFORMATION
  Report Type: Spontaneous
  Country: DE (occurrence: DE)
  Receive Date: 20160226
  Receipt Date: 20160226
  Transmission Date: 20160526
  Serious: Yes (Other)
  Sender: FDA-Public Use
  Company Number: DE-MUNDIPHARMA DS AND PHARMACOVIGILANCE-DEU-2016-0017698

PATIENT
  Sex: Male

DRUGS (14)
  1. PANTOZOL [Concomitant]
     Active Substance: PANTOPRAZOLE SODIUM
  2. TARGIN 10/5 MG RETARDTABLETTEN [Suspect]
     Active Substance: NALOXONE HYDROCHLORIDE\OXYCODONE HYDROCHLORIDE
     Indication: PAIN
     Dosage: 5/2.5 MG, BID
     Route: 065
     Dates: start: 20160208
  3. MARCUMAR [Suspect]
     Active Substance: PHENPROCOUMON
     Dosage: 1 OR 1/2 TABLET, DAILY
     Route: 065
  4. MARCUMAR [Suspect]
     Active Substance: PHENPROCOUMON
     Dosage: UNK, SEE TEXT
     Route: 065
  5. BISOPROLOL [Concomitant]
     Active Substance: BISOPROLOL
  6. SPIROLACTON [Concomitant]
  7. DELIX                              /00885601/ [Concomitant]
     Active Substance: RAMIPRIL
  8. FUROSEMID                          /00032601/ [Concomitant]
     Active Substance: FUROSEMIDE
  9. LODOTRA 5 MG TABLETTEN MIT VERZOGERTER WIRKSTOFFFREISETZUNG [Concomitant]
  10. PLAVIX [Concomitant]
     Active Substance: CLOPIDOGREL BISULFATE
  11. ATORVASTATIN [Concomitant]
     Active Substance: ATORVASTATIN
  12. VIGANTOLETTEN [Concomitant]
     Active Substance: CHOLECALCIFEROL
  13. TARGIN 10/5 MG RETARDTABLETTEN [Suspect]
     Active Substance: NALOXONE HYDROCHLORIDE\OXYCODONE HYDROCHLORIDE
     Dosage: 10/5 MG, BID
     Route: 065
     Dates: start: 20160201, end: 20160207
  14. MARCUMAR [Suspect]
     Active Substance: PHENPROCOUMON
     Indication: ANTICOAGULANT THERAPY
     Dosage: 0.5 TABLET, DAILY
     Route: 065

REACTIONS (2)
  - Somnolence [Unknown]
  - Prothrombin time prolonged [Recovered/Resolved]

NARRATIVE: CASE EVENT DATE: 201602
